FAERS Safety Report 6474017-X (Version None)
Quarter: 2009Q4

REPORT INFORMATION
  Report Type: 
  Country: None (occurrence: None)
  Receive Date: 20091204
  Receipt Date: 20081223
  Transmission Date: 20100525
  Serious: No
  Sender: FDA-Public Use
  Company Number: US-AMGEN-KDL325475

PATIENT
  Sex: Male

DRUGS (3)
  1. ENBREL [Suspect]
     Indication: RHEUMATOID ARTHRITIS
     Route: 058
     Dates: start: 20021221
  2. IMURAN [Concomitant]
     Route: 048
  3. HUMIRA [Concomitant]

REACTIONS (3)
  - JOINT SWELLING [None]
  - PROSTATITIS [None]
  - SYNOVIAL CYST [None]
